FAERS Safety Report 5015350-8 (Version None)
Quarter: 2006Q2

REPORT INFORMATION
  Report Type: 
  Country: None (occurrence: None)
  Receive Date: 20060530
  Receipt Date: 20060530
  Transmission Date: 20061013
  Serious: Yes (Hospitalization)
  Sender: FDA-Public Use
  Company Number: None

PATIENT
  Age: 52 Year
  Sex: Male
  Weight: 102.0593 kg

DRUGS (5)
  1. ERLOTINIB  100MG [Suspect]
     Indication: TONGUE NEOPLASM MALIGNANT STAGE UNSPECIFIED
  2. BEVACIZUMAB 10MG/KG IV Q 2 WEEKS [Suspect]
  3. OXYCODONE HCL [Concomitant]
  4. MIRALAX [Concomitant]
  5. PROTONIX [Concomitant]

REACTIONS (1)
  - BODY TEMPERATURE INCREASED [None]
